FAERS Safety Report 10222242 (Version 2)
Quarter: 2014Q2

REPORT INFORMATION
  Report Type: Report from Study
  Country: US (occurrence: US)
  Receive Date: 20140606
  Receipt Date: 20140627
  Transmission Date: 20141212
  Serious: Yes (Hospitalization)
  Sender: FDA-Public Use
  Company Number: US-SA-2014SA072236

PATIENT
  Age: 66 Year
  Sex: Male

DRUGS (8)
  1. LANTUS SOLOSTAR [Suspect]
     Indication: TYPE 2 DIABETES MELLITUS
     Dosage: DOSE: 42 UNITS IN THE MORNING AND 40 UNITS AT NIGHT
     Route: 065
     Dates: start: 20040101
  2. APIDRA SOLOSTAR [Suspect]
     Indication: TYPE 2 DIABETES MELLITUS
     Dosage: DOSE: 6-15 UNITS
     Route: 065
     Dates: start: 20040101
  3. SOLOSTAR [Concomitant]
     Indication: DEVICE THERAPY
     Dates: start: 2006
  4. SOLOSTAR [Concomitant]
     Indication: DEVICE THERAPY
     Dates: start: 2008
  5. OXYGEN [Concomitant]
     Dosage: 24/7
  6. HYDROCODONE [Concomitant]
     Indication: PAIN
     Route: 065
     Dates: start: 1989
  7. SIMVASTATIN [Concomitant]
     Indication: BLOOD CHOLESTEROL INCREASED
     Route: 065
     Dates: start: 1999
  8. LASIX [Concomitant]
     Indication: OEDEMA
     Route: 065

REACTIONS (4)
  - Chronic obstructive pulmonary disease [Not Recovered/Not Resolved]
  - Renal failure [Not Recovered/Not Resolved]
  - Necrosis [Not Recovered/Not Resolved]
  - Oedema peripheral [Not Recovered/Not Resolved]
